FAERS Safety Report 9345286 (Version 3)
Quarter: 2014Q1

REPORT INFORMATION
  Report Type: Spontaneous
  Country: US (occurrence: US)
  Receive Date: 20130613
  Receipt Date: 20140227
  Transmission Date: 20141002
  Serious: Yes (Hospitalization)
  Sender: FDA-Public Use
  Company Number: US-B.I. PHARMACEUTICALS,INC./RIDGEFIELD-2013-BI-16111BP

PATIENT
  Age: 83 Year
  Sex: Female
  Weight: 56.25 kg

DRUGS (4)
  1. PRADAXA [Suspect]
     Indication: CEREBROVASCULAR ACCIDENT PROPHYLAXIS
     Route: 065
     Dates: start: 20110701, end: 20120117
  2. PRADAXA [Suspect]
     Indication: THROMBOSIS PROPHYLAXIS
  3. KEPPRA [Concomitant]
     Route: 048
  4. COMPLETE ENTERABLE FORMULA [Concomitant]
     Route: 065

REACTIONS (5)
  - Upper gastrointestinal haemorrhage [Recovered/Resolved]
  - Respiratory failure [Unknown]
  - Haemorrhagic anaemia [Unknown]
  - Anaemia of chronic disease [Unknown]
  - Haematuria [Unknown]
